FAERS Safety Report 9684923 (Version 3)
Quarter: 2013Q4

REPORT INFORMATION
  Report Type: Spontaneous
  Country: DK (occurrence: DK)
  Receive Date: 20131113
  Receipt Date: 20131119
  Transmission Date: 20140711
  Serious: Yes (Hospitalization)
  Sender: FDA-Public Use
  Company Number: DK-JNJFOC-20131106150

PATIENT
  Age: 34 Year
  Sex: Female

DRUGS (4)
  1. IMODIUM [Suspect]
     Route: 048
  2. IMODIUM [Suspect]
     Indication: DIARRHOEA
     Route: 048
     Dates: start: 20130526, end: 20131101
  3. MAREVAN [Concomitant]
     Indication: DEEP VEIN THROMBOSIS
     Dates: start: 20130516, end: 20131101
  4. CETIRIZINE HYDROCHLORIDE [Concomitant]
     Indication: HYPERSENSITIVITY
     Route: 065

REACTIONS (1)
  - Epilepsy [Recovered/Resolved]
